FAERS Safety Report 16942825 (Version 2)
Quarter: 2020Q1

REPORT INFORMATION
  Report Type: Spontaneous
  Country: GB (occurrence: GB)
  Receive Date: 20191021
  Receipt Date: 20200203
  Transmission Date: 20200409
  Serious: Yes (Disabling, Other)
  Sender: FDA-Public Use
  Company Number: GB-MYLANLABS-2019M1098327

PATIENT
  Age: 71 Year
  Sex: Male
  Weight: 107.95 kg

DRUGS (1)
  1. INDAPAMIDE MYLAN [Suspect]
     Active Substance: INDAPAMIDE
     Indication: PRODUCT USED FOR UNKNOWN INDICATION
     Dosage: 2.5 MILLIGRAM
     Route: 065
     Dates: start: 20190218, end: 20190709

REACTIONS (5)
  - Neck pain [Recovering/Resolving]
  - Headache [Not Recovered/Not Resolved]
  - Pain in extremity [Not Recovered/Not Resolved]
  - Peripheral swelling [Recovering/Resolving]
  - Swollen tongue [Recovering/Resolving]

NARRATIVE: CASE EVENT DATE: 20190219
